FAERS Safety Report 9260237 (Version 3)
Quarter: 2013Q2

REPORT INFORMATION
  Report Type: Spontaneous
  Country: US (occurrence: US)
  Receive Date: 20130429
  Receipt Date: 20130603
  Transmission Date: 20140414
  Serious: No
  Sender: FDA-Public Use
  Company Number: US-PFIZER INC-2013133265

PATIENT
  Age: 46 Year
  Sex: Female
  Weight: 52.15 kg

DRUGS (9)
  1. LYRICA [Suspect]
     Indication: NEURALGIA
     Dosage: 75 MG, 2X/DAY
     Route: 048
     Dates: start: 20130207, end: 20130506
  2. LYRICA [Suspect]
     Indication: SCIATICA
  3. LYRICA [Suspect]
     Indication: BACK PAIN
  4. IRON [Concomitant]
     Dosage: UNK
  5. NAPROSYN [Concomitant]
     Dosage: 500 MG, 2X/DAY (WITH FOOD)
     Route: 048
     Dates: start: 20130207
  6. NEXIUM [Concomitant]
     Indication: GASTROOESOPHAGEAL REFLUX DISEASE
     Dosage: 40 MG, 1X/DAY (1 PO Q AM)
     Route: 048
     Dates: start: 20101117
  7. RIBAVIRIN [Concomitant]
     Dosage: 200 MG, UNK
  8. PEGASYS [Concomitant]
     Dosage: 180 MCG/ML
     Route: 058
  9. NORCO [Concomitant]
     Dosage: UNK

REACTIONS (14)
  - Vision blurred [Recovering/Resolving]
  - Memory impairment [Recovering/Resolving]
  - Disturbance in attention [Recovering/Resolving]
  - Pain [Unknown]
  - Injury [Unknown]
  - Fall [Unknown]
  - Fracture [Unknown]
  - Paraesthesia [Unknown]
  - Pain in extremity [Unknown]
  - Ear pain [Unknown]
  - Arthralgia [Unknown]
  - Anxiety [Unknown]
  - Depression [Unknown]
  - Drug ineffective [Unknown]
